FAERS Safety Report 13477939 (Version 2)
Quarter: 2017Q2

REPORT INFORMATION
  Report Type: Spontaneous
  Country: FR (occurrence: FR)
  Receive Date: 20170425
  Receipt Date: 20170428
  Transmission Date: 20170830
  Serious: Yes (Hospitalization)
  Sender: FDA-Public Use
  Company Number: FR-IPSEN BIOPHARMACEUTICALS, INC.-2017-03199

PATIENT
  Age: 61 Year
  Sex: Female
  Weight: 54 kg

DRUGS (20)
  1. DAFALGON [Concomitant]
     Indication: CARCINOID SYNDROME
     Route: 048
     Dates: start: 20150130
  2. GAVISCON [Concomitant]
     Active Substance: ALUMINUM HYDROXIDE\MAGNESIUM CARBONATE
     Indication: CARCINOID SYNDROME
     Route: 048
     Dates: start: 20150612
  3. LX1606 [Concomitant]
     Indication: CARCINOID SYNDROME
     Route: 048
     Dates: start: 20150317, end: 20170111
  4. OMEPRAZOLE. [Concomitant]
     Active Substance: OMEPRAZOLE
     Indication: CARCINOID SYNDROME
     Route: 048
     Dates: start: 20150612
  5. DIFFU K [Concomitant]
     Active Substance: POTASSIUM CHLORIDE
     Indication: HYPOKALAEMIA
     Route: 048
     Dates: start: 201509, end: 20160516
  6. LX1606 [Concomitant]
     Route: 048
     Dates: start: 20170118
  7. LANREOTIDE ATG 120MG [Suspect]
     Active Substance: LANREOTIDE
     Indication: CARCINOID SYNDROME
     Dosage: 120 MG
     Route: 030
     Dates: start: 200606
  8. SMECTA [Suspect]
     Active Substance: MONTMORILLONITE
     Indication: ANTIDIARRHOEAL SUPPORTIVE CARE
     Route: 048
     Dates: start: 201605
  9. LASILIX [Concomitant]
     Active Substance: FUROSEMIDE
     Indication: OEDEMA
     Route: 048
     Dates: start: 20150612
  10. AFINITOR [Concomitant]
     Active Substance: EVEROLIMUS
     Indication: CARCINOID SYNDROME
     Dosage: 5 MG 6 DAYS, 10 MG, 1 DAY
     Route: 048
     Dates: start: 20160101, end: 20160615
  11. AFINITOR [Concomitant]
     Active Substance: EVEROLIMUS
     Dosage: 5 MG
     Route: 048
     Dates: start: 20160615
  12. VOGALENE [Concomitant]
     Active Substance: METOPIMAZINE
     Indication: NAUSEA
     Route: 048
     Dates: start: 20150615
  13. DIFFU K [Concomitant]
     Active Substance: POTASSIUM CHLORIDE
     Route: 048
     Dates: start: 20160517
  14. SPASFON LYOC [Concomitant]
     Active Substance: PHLOROGLUCINOL
     Indication: ABDOMINAL PAIN UPPER
     Route: 048
     Dates: start: 20150702
  15. LOPERAMIDE [Concomitant]
     Active Substance: LOPERAMIDE
     Indication: CARCINOID SYNDROME
     Route: 048
     Dates: start: 20111222
  16. LANREOTIDE ATG 120MG [Suspect]
     Active Substance: LANREOTIDE
     Indication: CARCINOID TUMOUR
  17. SOLU-MEDROL [Concomitant]
     Active Substance: METHYLPREDNISOLONE SODIUM SUCCINATE
     Indication: APHTHOUS ULCER
     Route: 061
     Dates: start: 201504
  18. ZOLPIDEM [Concomitant]
     Active Substance: ZOLPIDEM\ZOLPIDEM TARTRATE
     Indication: INSOMNIA
     Route: 048
     Dates: start: 201602
  19. CREON [Concomitant]
     Active Substance: PANCRELIPASE AMYLASE\PANCRELIPASE LIPASE\PANCRELIPASE PROTEASE
     Indication: CARCINOID SYNDROME
     Route: 048
  20. FORTIMEL [Concomitant]
     Active Substance: DIETARY SUPPLEMENT
     Indication: MALNUTRITION
     Dosage: 1-2 BOTTLES A DAY
     Route: 048
     Dates: start: 201407

REACTIONS (14)
  - Back pain [Not Recovered/Not Resolved]
  - Eyelid oedema [Not Recovered/Not Resolved]
  - Abdominal pain upper [Not Recovered/Not Resolved]
  - Incorrect route of drug administration [Unknown]
  - Alopecia [Recovered/Resolved]
  - Femoral neck fracture [Recovered/Resolved]
  - Anxiety [Not Recovered/Not Resolved]
  - Alanine aminotransferase increased [Not Recovered/Not Resolved]
  - Intestinal obstruction [Recovered/Resolved]
  - Dry skin [Recovered/Resolved]
  - Rash [Not Recovered/Not Resolved]
  - Gamma-glutamyltransferase increased [Not Recovered/Not Resolved]
  - Flatulence [Not Recovered/Not Resolved]
  - Hypercholesterolaemia [Not Recovered/Not Resolved]

NARRATIVE: CASE EVENT DATE: 200812
